FAERS Safety Report 7570712-X (Version None)
Quarter: 2011Q2

REPORT INFORMATION
  Report Type: 
  Country: None (occurrence: None)
  Receive Date: 20110624
  Receipt Date: 20110614
  Transmission Date: 20111010
  Serious: Yes (Hospitalization, Other)
  Sender: FDA-Public Use
  Company Number: US-ELI_LILLY_AND_COMPANY-US201011002216

PATIENT
  Sex: Male
  Weight: 106.58 kg

DRUGS (5)
  1. EFFIENT [Suspect]
     Indication: STENT PLACEMENT
     Dosage: 10 MG, DAILY (1/D)
     Route: 048
     Dates: start: 20100125, end: 20101103
  2. METOPROLOL TARTRATE [Concomitant]
     Dosage: 25 MG, 2/D
     Route: 065
  3. ASPIRIN [Concomitant]
     Dosage: 325 MG, UNKNOWN
     Route: 065
  4. COZAAR [Concomitant]
     Dosage: 50 MG, UNKNOWN
     Route: 065
  5. NIASPAN [Concomitant]
     Dosage: UNK, UNKNOWN
     Route: 065

REACTIONS (13)
  - COAGULOPATHY [None]
  - SKELETAL INJURY [None]
  - PAIN [None]
  - SINUSITIS [None]
  - DYSPNOEA [None]
  - WAIST CIRCUMFERENCE INCREASED [None]
  - ANGER [None]
  - ABDOMINAL WALL HAEMATOMA [None]
  - MUSCLE RUPTURE [None]
  - TUMOUR COMPRESSION [None]
  - DYSURIA [None]
  - CHEST INJURY [None]
  - FEAR [None]
